FAERS Safety Report 12455995 (Version 1)
Quarter: 2016Q2

REPORT INFORMATION
  Report Type: Spontaneous
  Country: US (occurrence: US)
  Receive Date: 20160610
  Receipt Date: 20160610
  Transmission Date: 20160815
  Serious: Yes (Other)
  Sender: FDA-Public Use
  Company Number: US-BECTON DICKINSON-2016BDN00080

PATIENT
  Age: 70 Year
  Sex: Male

DRUGS (3)
  1. ANESTHETIC INDUCTION AGENT(S) [Concomitant]
     Route: 065
  2. GENERAL ANESTHETIC(S) [Concomitant]
     Route: 065
  3. CHLORHEXIDINE [Suspect]
     Active Substance: CHLORHEXIDINE
     Route: 065

REACTIONS (1)
  - Anaphylactic reaction [Unknown]

NARRATIVE: CASE EVENT DATE: 2009
